FAERS Safety Report 7846401-0 (Version None)
Quarter: 2011Q4

REPORT INFORMATION
  Report Type: 
  Country: None (occurrence: None)
  Receive Date: 20111025
  Receipt Date: 20111025
  Transmission Date: 20120403
  Serious: Yes (Hospitalization)
  Sender: FDA-Public Use
  Company Number: None

PATIENT
  Age: 56 Year
  Sex: Male
  Weight: 131.54 kg

DRUGS (2)
  1. PRIFTIN [Suspect]
     Indication: MYCOBACTERIUM TUBERCULOSIS COMPLEX TEST POSITIVE
     Dosage: 6 TABLES
     Route: 048
     Dates: start: 20110902, end: 20111014
  2. ISONIAZID [Concomitant]
     Indication: MYCOBACTERIUM TUBERCULOSIS COMPLEX TEST POSITIVE
     Dosage: 3 TABLES
     Route: 048
     Dates: start: 20110902, end: 20111014

REACTIONS (10)
  - ARTHRALGIA [None]
  - PAIN [None]
  - NAUSEA [None]
  - DYSPNOEA [None]
  - PYREXIA [None]
  - VOMITING [None]
  - DIARRHOEA [None]
  - INFLUENZA [None]
  - CHILLS [None]
  - HEADACHE [None]
